FAERS Safety Report 16572688 (Version 1)
Quarter: 2019Q3

REPORT INFORMATION
  Report Type: Report from Study
  Country: GB (occurrence: GB)
  Receive Date: 20190715
  Receipt Date: 20190715
  Transmission Date: 20191004
  Serious: Yes (Other)
  Sender: FDA-Public Use
  Company Number: GB-MYLANLABS-2019M1064858

PATIENT
  Sex: Female

DRUGS (15)
  1. TRASTUZUMAB. [Suspect]
     Active Substance: TRASTUZUMAB
     Dosage: 393 MILLIGRAM, 3XW, MAINTENANCE DOSE
     Route: 042
     Dates: start: 20160511
  2. TRASTUZUMAB. [Suspect]
     Active Substance: TRASTUZUMAB
     Dosage: 393 MILLIGRAM, 3XW, MAINTENANCE DOSE
     Route: 042
     Dates: start: 20160601
  3. PERTUZUMAB. [Suspect]
     Active Substance: PERTUZUMAB
     Dosage: 420 MILLIGRAM, 3XW (MAINTENANCE DOSE)
     Route: 042
     Dates: start: 20160914
  4. DOCETAXEL. [Suspect]
     Active Substance: DOCETAXEL
     Indication: BREAST CANCER METASTATIC
     Dosage: 75 MILLIGRAM, 3XW
     Route: 042
     Dates: start: 20141215, end: 20151215
  5. PERTUZUMAB. [Suspect]
     Active Substance: PERTUZUMAB
     Indication: BREAST CANCER METASTATIC
     Dosage: 840 MILLIGRAM, 3XW
     Route: 042
     Dates: start: 20141215
  6. PERTUZUMAB. [Suspect]
     Active Substance: PERTUZUMAB
     Dosage: 420 MILLIGRAM, 3XW
     Route: 042
     Dates: start: 20160511
  7. PERTUZUMAB. [Suspect]
     Active Substance: PERTUZUMAB
     Dosage: 420 MILLIGRAM, 3XW (MAINTENANCE DOSE)
     Route: 042
     Dates: start: 20150105
  8. PERTUZUMAB. [Suspect]
     Active Substance: PERTUZUMAB
     Dosage: 420 MILLIGRAM, 3XW (MAINTENANCE DOSE)
     Route: 042
     Dates: start: 20160803
  9. TRASTUZUMAB. [Suspect]
     Active Substance: TRASTUZUMAB
     Indication: BREAST CANCER METASTATIC
     Dosage: 512 MILLIGRAM, 3XW (LOADING DOSE)
     Route: 042
     Dates: start: 20141215
  10. TRASTUZUMAB. [Suspect]
     Active Substance: TRASTUZUMAB
     Dosage: 384 MILLIGRAM, 3XW, MAINTENANCE DOSE
     Route: 042
     Dates: start: 20150105
  11. TRASTUZUMAB. [Suspect]
     Active Substance: TRASTUZUMAB
     Dosage: 393 MILLIGRAM, 3XW, MAINTENANCE DOSE
     Route: 042
     Dates: start: 20160329
  12. TRASTUZUMAB. [Suspect]
     Active Substance: TRASTUZUMAB
     Dosage: 393 MILLIGRAM, 3XW, MAINTENANCE DOSE
     Route: 042
     Dates: start: 20160914
  13. PERTUZUMAB. [Suspect]
     Active Substance: PERTUZUMAB
     Dosage: 420 MILLIGRAM, 3XW (MAINTENANCE DOSE)
     Route: 042
     Dates: start: 20160601
  14. TRASTUZUMAB. [Suspect]
     Active Substance: TRASTUZUMAB
     Dosage: 393 MILLIGRAM, 3XW, MAINTENANCE DOSE
     Route: 042
     Dates: start: 20160803
  15. PERTUZUMAB. [Suspect]
     Active Substance: PERTUZUMAB
     Dosage: 420 MILLIGRAM, 3XW (MAINTENANCE DOSE)
     Route: 042
     Dates: start: 20160329

REACTIONS (11)
  - Ovarian cyst [Recovered/Resolved]
  - Rash [Recovered/Resolved]
  - Fatigue [Not Recovered/Not Resolved]
  - Musculoskeletal pain [Recovered/Resolved]
  - Oral pain [Recovered/Resolved]
  - Headache [Recovered/Resolved]
  - Palmar-plantar erythrodysaesthesia syndrome [Recovered/Resolved]
  - Hot flush [Recovered/Resolved with Sequelae]
  - Mucosal inflammation [Recovered/Resolved]
  - Constipation [Recovered/Resolved]
  - Arthralgia [Recovered/Resolved]

NARRATIVE: CASE EVENT DATE: 20150330
